FAERS Safety Report 19112594 (Version 1)
Quarter: 2021Q2

REPORT INFORMATION
  Report Type: Spontaneous
  Country: US (occurrence: US)
  Receive Date: 20210409
  Receipt Date: 20210409
  Transmission Date: 20210717
  Serious: No
  Sender: FDA-Public Use
  Company Number: US-ALLERGAN-2035167US

PATIENT
  Age: 49 Year
  Sex: Female

DRUGS (6)
  1. LILETTA [Suspect]
     Active Substance: LEVONORGESTREL
     Indication: DYSMENORRHOEA
     Dosage: 52 MG, SINGLE
     Route: 015
     Dates: start: 20200703
  2. OMEPRAZOLE. [Concomitant]
     Active Substance: OMEPRAZOLE
     Indication: GASTROOESOPHAGEAL REFLUX DISEASE
     Dosage: UNK, QD
  3. CYMBALTA [Concomitant]
     Active Substance: DULOXETINE HYDROCHLORIDE
     Indication: FIBROMYALGIA
  4. CYMBALTA [Concomitant]
     Active Substance: DULOXETINE HYDROCHLORIDE
     Indication: DEPRESSION
     Dosage: UNK, QD
     Route: 048
  5. IRON [Concomitant]
     Active Substance: IRON
     Indication: BLOOD IRON DECREASED
     Dosage: UNK, QD
     Route: 048
  6. OTEZLA [Concomitant]
     Active Substance: APREMILAST
     Indication: PSORIATIC ARTHROPATHY
     Dosage: UNK, QD
     Route: 048

REACTIONS (4)
  - Breast tenderness [Recovered/Resolved]
  - Lymphadenopathy [Recovered/Resolved]
  - Off label use [Unknown]
  - Lymph node pain [Recovered/Resolved]

NARRATIVE: CASE EVENT DATE: 20200703
